FAERS Safety Report 9718883 (Version 1)
Quarter: 2013Q4

REPORT INFORMATION
  Report Type: Spontaneous
  Country: IT (occurrence: None)
  Receive Date: 20131126
  Receipt Date: 20131126
  Transmission Date: 20140711
  Serious: Yes (Hospitalization)
  Sender: FDA-Public Use
  Company Number: AUR-APL-2013-09205

PATIENT
  Age: 48 Year
  Sex: Female

DRUGS (2)
  1. BISOPROLOL (BISOPROLOL) [Suspect]
     Indication: SUPRAVENTRICULAR EXTRASYSTOLES
     Dates: start: 20130923, end: 20131017
  2. AMLODIPINE (AMLODIPINE) [Suspect]
     Indication: HYPERTENSION

REACTIONS (3)
  - Vertigo [None]
  - Drug interaction [None]
  - Sinus bradycardia [None]
